FAERS Safety Report 9316525 (Version 2)
Quarter: 2013Q2

REPORT INFORMATION
  Report Type: Spontaneous
  Country: US (occurrence: None)
  Receive Date: 20130524
  Receipt Date: 20130611
  Transmission Date: 20140414
  Serious: Yes (Hospitalization)
  Sender: FDA-Public Use
  Company Number: USA/USA/13/0029677

PATIENT
  Age: 90 Year
  Sex: Male

DRUGS (6)
  1. SILDENAFIL [Suspect]
     Indication: PULMONARY HYPERTENSION
     Dosage: 20MG, 3 IN 1D, UNKNOWN
  2. ACETYLSALICYLIC ACID [Suspect]
     Indication: PRODUCT USED FOR UNKNOWN INDICATION
     Dosage: 81MG 1D
  3. ROSUVASTATIN (ROSUVASTATIN) [Concomitant]
  4. TAMSULOSIN (TAMSULOSIN) [Concomitant]
  5. ALBUTEROL-IPRATROPIUM (SALBUTAMOL W/IPRATROPIUM) [Concomitant]
  6. CORTICOSTEROIDS (CORTICOSTEROIDS) [Concomitant]

REACTIONS (6)
  - Haemoptysis [None]
  - Epistaxis [None]
  - Respiratory failure [None]
  - Pneumonia [None]
  - General physical health deterioration [None]
  - Lung infiltration [None]
